FAERS Safety Report 6289063 (Version 3)
Quarter: 2016Q2

REPORT INFORMATION
  Report Type: Spontaneous
  Country: US (occurrence: US)
  Receive Date: 20070416
  Receipt Date: 20160504
  Transmission Date: 20160815
  Serious: Yes (Other)
  Sender: FDA-Public Use
  Company Number: US-ELI_LILLY_AND_COMPANY-US200704001426

PATIENT
  Age: 59 Year
  Sex: Female
  Weight: 81.18 kg

DRUGS (2)
  1. HUMATROPE [Suspect]
     Active Substance: SOMATROPIN
     Indication: HYPERPITUITARISM
     Dosage: 0.4 MG, QD
     Route: 065
     Dates: start: 200611
  2. HUMATROPE [Suspect]
     Active Substance: SOMATROPIN
     Indication: PITUITARY TUMOUR REMOVAL

REACTIONS (11)
  - Dehydration [Unknown]
  - Neoplasm malignant [Not Recovered/Not Resolved]
  - Energy increased [Not Recovered/Not Resolved]
  - Crying [Unknown]
  - Nervousness [Unknown]
  - Cardiomegaly [Not Recovered/Not Resolved]
  - Macular degeneration [Not Recovered/Not Resolved]
  - Bladder mass [Not Recovered/Not Resolved]
  - Weight decreased [Not Recovered/Not Resolved]
  - Brain neoplasm [Not Recovered/Not Resolved]
  - Uterine mass [Not Recovered/Not Resolved]

NARRATIVE: CASE EVENT DATE: 200611
